FAERS Safety Report 5165418-0 (Version None)
Quarter: 2006Q4

REPORT INFORMATION
  Report Type: 
  Country: None (occurrence: None)
  Receive Date: 20061206
  Receipt Date: 20061130
  Transmission Date: 20070319
  Serious: Yes (Death, Other)
  Sender: FDA-Public Use
  Company Number: PHEH2006US14757

PATIENT
  Age: 66 Year
  Sex: Male

DRUGS (4)
  1. PREDNISONE TAB [Concomitant]
  2. CELLCEPT [Concomitant]
  3. NORVASC [Concomitant]
  4. NEORAL [Suspect]
     Indication: RENAL TRANSPLANT
     Route: 048
     Dates: start: 19970729

REACTIONS (4)
  - DEATH [None]
  - HALLUCINATION [None]
  - MUSCULAR WEAKNESS [None]
  - VERTIGO [None]
